FAERS Safety Report 9122722 (Version 1)
Quarter: 2013Q1

REPORT INFORMATION
  Report Type: Spontaneous
  Country: IT (occurrence: IT)
  Receive Date: 20130115
  Receipt Date: 20130115
  Transmission Date: 20140127
  Serious: Yes (Hospitalization)
  Sender: FDA-Public Use
  Company Number: IT-009507513-1301ITA004935

PATIENT
  Age: 57 Year
  Sex: Female

DRUGS (6)
  1. LOSARTAN POTASSIUM [Suspect]
     Indication: HYPERTENSION
     Dosage: UNK UNK, QD
     Route: 048
     Dates: start: 20120811, end: 20121221
  2. COUMADIN [Suspect]
     Indication: VERTEBRAL ARTERY DISSECTION
     Dosage: 6.25 MG, DAILY
     Route: 048
     Dates: start: 20120811, end: 20121221
  3. COUMADIN [Suspect]
     Dosage: 6.25 MG, DAILY
     Route: 048
     Dates: start: 20121224, end: 20121228
  4. SERTRALINE HYDROCHLORIDE [Concomitant]
     Indication: PSYCHOTIC DISORDER
  5. LORAZEPAM [Concomitant]
  6. OMEPRAZOLE [Concomitant]

REACTIONS (2)
  - International normalised ratio abnormal [Recovered/Resolved]
  - Hypotension [Recovered/Resolved]
